FAERS Safety Report 9351133 (Version 2)
Quarter: 2013Q3

REPORT INFORMATION
  Report Type: Spontaneous
  Country: US (occurrence: US)
  Receive Date: 20130617
  Receipt Date: 20130708
  Transmission Date: 20140515
  Serious: Yes (Other)
  Sender: FDA-Public Use
  Company Number: US-AMGEN-USASP2013041862

PATIENT
  Sex: Male

DRUGS (3)
  1. XGEVA [Suspect]
     Indication: PRODUCT USED FOR UNKNOWN INDICATION
     Dosage: UNK
  2. XTANDI [Concomitant]
     Dosage: UNK
  3. FIRMAGON                           /01764801/ [Concomitant]

REACTIONS (2)
  - Cardiac failure congestive [Unknown]
  - Malaise [Not Recovered/Not Resolved]
